FAERS Safety Report 16748898 (Version 1)
Quarter: 2019Q3

REPORT INFORMATION
  Report Type: Spontaneous
  Country: NL (occurrence: NL)
  Receive Date: 20190828
  Receipt Date: 20190828
  Transmission Date: 20191005
  Serious: Yes (Death)
  Sender: FDA-Public Use
  Company Number: NL-TEVA-2019-NL-1097804

PATIENT
  Age: 56 Year
  Sex: Female
  Weight: 62 kg

DRUGS (11)
  1. PACLITAXEL. [Suspect]
     Active Substance: PACLITAXEL
     Indication: OESOPHAGEAL CANCER METASTATIC
     Dates: start: 20190612, end: 20190714
  2. TEMAZEPAM CAPSULE 10MG [Concomitant]
     Dosage: 10 MG
  3. PANTOZOL [Concomitant]
     Active Substance: PANTOPRAZOLE SODIUM
     Dosage: 40 MG
  4. CYRAMZA [Interacting]
     Active Substance: RAMUCIRUMAB
     Indication: OESOPHAGEAL CANCER METASTATIC
     Dosage: 8 MG/KG
  5. OXAZEPAM TABLET 10MG [Concomitant]
     Dosage: 10 MG
  6. KALIUMCHLORIDE DRANK 1MMOL/ML FLC 300ML [Concomitant]
     Dosage: 1DD30ML
  7. MONO CEDOCARD (ISOSORBIDEMON) RET C 50MG [Concomitant]
     Dosage: 50 MG
  8. THIAMINE HCL TABLET 100MG [Concomitant]
     Dosage: 100 MG
  9. SPIRIVA RESPIMAT INHALATOR 2,5MCG/D 60D [Concomitant]
     Dosage: 5 MCG
  10. EUTHYROX TABLET 100MCG [Concomitant]
     Dosage: 100 MCG
  11. PARACETAMOL TABLET 500MG [Concomitant]
     Active Substance: ACETAMINOPHEN
     Dosage: 500 MG

REACTIONS (2)
  - Gastrointestinal perforation [Fatal]
  - Drug interaction [Fatal]

NARRATIVE: CASE EVENT DATE: 20190714
